FAERS Safety Report 21063337 (Version 1)
Quarter: 2022Q3

REPORT INFORMATION
  Report Type: Spontaneous
  Country: FR (occurrence: FR)
  Receive Date: 20220711
  Receipt Date: 20220711
  Transmission Date: 20221027
  Serious: Yes (Death)
  Sender: FDA-Public Use
  Company Number: FR-AFSSAPS-AVCN20220449

PATIENT
  Age: 58 Year
  Sex: Male

DRUGS (3)
  1. CETIRIZINE [Suspect]
     Active Substance: CETIRIZINE HYDROCHLORIDE
     Indication: Product used for unknown indication
     Dosage: UNSPECIFIED
     Route: 048
     Dates: end: 202205
  2. SILDENAFIL [Suspect]
     Active Substance: SILDENAFIL
     Indication: Product used for unknown indication
     Dosage: UNSPECIFIED
     Route: 048
     Dates: end: 202205
  3. MIDOMAFETAMINE [Suspect]
     Active Substance: MIDOMAFETAMINE
     Indication: Product used for unknown indication
     Dosage: UNSPECIFIED
     Route: 048
     Dates: start: 202205, end: 202205

REACTIONS (3)
  - Poisoning [Fatal]
  - Cardio-respiratory arrest [Fatal]
  - Seizure [Fatal]

NARRATIVE: CASE EVENT DATE: 20220501
